FAERS Safety Report 8025020-X (Version None)
Quarter: 2012Q1

REPORT INFORMATION
  Report Type: 
  Country: None (occurrence: None)
  Receive Date: 20120105
  Receipt Date: 20120103
  Transmission Date: 20120608
  Serious: Yes (Hospitalization, Other)
  Sender: FDA-Public Use
  Company Number: US-ROCHE-1025812

PATIENT
  Sex: Female
  Weight: 59 kg

DRUGS (3)
  1. IBUPROFEN [Concomitant]
  2. YASMIN [Concomitant]
     Route: 048
     Dates: end: 20081001
  3. ACCUTANE [Suspect]
     Indication: ACNE
     Route: 065
     Dates: start: 19980326, end: 19990101

REACTIONS (7)
  - INFLAMMATORY BOWEL DISEASE [None]
  - ORAL HERPES [None]
  - SMALL INTESTINAL OBSTRUCTION [None]
  - IRRITABLE BOWEL SYNDROME [None]
  - COLITIS ULCERATIVE [None]
  - DEPRESSION [None]
  - INTESTINAL ANASTOMOSIS COMPLICATION [None]
